FAERS Safety Report 12139282 (Version 1)
Quarter: 2016Q1

REPORT INFORMATION
  Report Type: Report from Study
  Country: US (occurrence: US)
  Receive Date: 20160303
  Receipt Date: 20160303
  Transmission Date: 20160526
  Serious: Yes (Other)
  Sender: FDA-Public Use
  Company Number: US-ROCHE-1718379

PATIENT

DRUGS (2)
  1. BEVACIZUMAB [Suspect]
     Active Substance: BEVACIZUMAB
     Indication: MALIGNANT GLIOMA
     Route: 065
  2. DEXAMETHASONE. [Suspect]
     Active Substance: DEXAMETHASONE
     Indication: MALIGNANT GLIOMA
     Route: 065

REACTIONS (7)
  - Rash [Unknown]
  - Skin ulcer [Unknown]
  - Abnormal dreams [Unknown]
  - Confusional state [Unknown]
  - Paraesthesia [Unknown]
  - Meningitis [Unknown]
  - Pruritus [Unknown]
